FAERS Safety Report 4349840-8 (Version None)
Quarter: 2004Q2

REPORT INFORMATION
  Report Type: 
  Country: None (occurrence: None)
  Receive Date: 20040426
  Receipt Date: 20040414
  Transmission Date: 20050107
  Serious: Yes (Death)
  Sender: FDA-Public Use
  Company Number: 04H-144-0257893-00

PATIENT
  Age: 29 Year
  Sex: Male

DRUGS (12)
  1. LEUCOVORIN CALCIUM [Suspect]
     Indication: CHEMOTHERAPY
  2. IFOSFAMIDE [Suspect]
     Indication: CHEMOTHERAPY
     Dosage: 800 MG / M2 DAY 1-5
     Route: 042
  3. DEXAMETHASONE [Suspect]
     Indication: CHEMOTHERAPY
     Dosage: 10 MG/M2, DAY 1-5
     Route: 042
  4. VINCRISTINE [Suspect]
     Indication: CHEMOTHERAPY
     Dosage: ONCE
     Route: 042
  5. METHOTREXATE [Suspect]
     Indication: CHEMOTHERAPY
     Dosage: 3 G/M**2
     Route: 042
  6. ETOPOSIDE [Suspect]
     Indication: CHEMOTHERAPY
     Dosage: 100 MG/M2,DAY 4AND 5
     Route: 042
  7. CYTARABINE [Suspect]
     Indication: CHEMOTHERAPY
     Dosage: 150 MG/M2, 1 IN 12 HR, DAY 4 AND 5
     Route: 042
  8. PREDNISONE [Concomitant]
  9. CYCLOPHOSPHAMIDE [Concomitant]
  10. METHOTREXATE [Concomitant]
  11. CYTARABINE [Concomitant]
  12. HYDROCORTISONE [Concomitant]

REACTIONS (4)
  - FUNGAL SEPSIS [None]
  - NEUTROPENIA [None]
  - SCEDOSPORIUM INFECTION [None]
  - THROMBOCYTOPENIA [None]
